FAERS Safety Report 24798160 (Version 1)
Quarter: 2025Q1

REPORT INFORMATION
  Report Type: Spontaneous
  Country: ES (occurrence: ES)
  Receive Date: 20250102
  Receipt Date: 20250102
  Transmission Date: 20250409
  Serious: Yes (Congenital Anomaly, Other)
  Sender: AUROBINDO
  Company Number: ES-ACTAVIS-2013-00251

PATIENT
  Sex: Male
  Weight: 2.73 kg

DRUGS (2)
  1. FINASTERIDE [Suspect]
     Active Substance: FINASTERIDE
     Indication: Prostatitis
     Dosage: 5 MG, DAILY
     Route: 064
  2. LEVOTHYROXINE SODIUM [Concomitant]
     Active Substance: LEVOTHYROXINE SODIUM
     Indication: Hypothyroidism
     Dosage: 50 MG, DAILY
     Route: 065

REACTIONS (10)
  - Congenital ectopic bladder [Unknown]
  - Umbilical cord abnormality [Unknown]
  - Micropenis [Unknown]
  - Epispadias [Unknown]
  - Cryptorchism [Unknown]
  - Congenital inguinal hernia [Unknown]
  - Symphysiolysis [Unknown]
  - Paternal exposure during pregnancy [Unknown]
  - Foetal exposure via father [Recovered/Resolved]
  - Foetal exposure during pregnancy [Recovered/Resolved]
